FAERS Safety Report 5064751-0 (Version None)
Quarter: 2006Q3

REPORT INFORMATION
  Report Type: 
  Country: None (occurrence: None)
  Receive Date: 20060728
  Receipt Date: 20060720
  Transmission Date: 20061208
  Serious: Yes (Other)
  Sender: FDA-Public Use
  Company Number: PHBS2006US11017

PATIENT
  Age: 6 Year
  Sex: Female
  Weight: 15 kg

DRUGS (3)
  1. PREDNISOLONE [Suspect]
     Dosage: 1-2 DRP, 4-6 TIMES PER DAY
  2. PREDNISOLONE [Suspect]
     Dosage: 1-2 DRP, EVERY 4 H
  3. PREDNISOLONE [Suspect]
     Dosage: 0.125%

REACTIONS (4)
  - ADRENAL SUPPRESSION [None]
  - CUSHINGOID [None]
  - GROWTH RETARDATION [None]
  - HYPERTRICHOSIS [None]
